FAERS Safety Report 6313722-2 (Version None)
Quarter: 2009Q3

REPORT INFORMATION
  Report Type: 
  Country: None (occurrence: None)
  Receive Date: 20090818
  Receipt Date: 20081229
  Transmission Date: 20100115
  Serious: No
  Sender: FDA-Public Use
  Company Number: US-BRISTOL-MYERS SQUIBB COMPANY-14457287

PATIENT
  Age: 46 Year
  Sex: Male
  Weight: 77 kg

DRUGS (4)
  1. ZERIT [Suspect]
     Indication: HIV INFECTION
  2. REYATAZ [Concomitant]
  3. NORVIR [Concomitant]
  4. TRUVADA [Concomitant]

REACTIONS (1)
  - LIPODYSTROPHY ACQUIRED [None]
